FAERS Safety Report 7124704-5 (Version None)
Quarter: 2010Q4

REPORT INFORMATION
  Report Type: 
  Country: None (occurrence: None)
  Receive Date: 20101122
  Receipt Date: 20101122
  Transmission Date: 20110411
  Serious: No
  Sender: FDA-Public Use
  Company Number: None

PATIENT
  Age: 26 Year
  Sex: Male
  Weight: 97 kg

DRUGS (1)
  1. DALTEPARIN 25,000 UNITS/ML [Suspect]
     Indication: DEEP VEIN THROMBOSIS
     Dosage: 19,500 UNITS DAILY SQ
     Route: 058
     Dates: start: 20101112, end: 20101116

REACTIONS (1)
  - RASH ERYTHEMATOUS [None]
